FAERS Safety Report 6447796-5 (Version None)
Quarter: 2009Q4

REPORT INFORMATION
  Report Type: 
  Country: None (occurrence: None)
  Receive Date: 20091120
  Receipt Date: 20091109
  Transmission Date: 20100525
  Serious: Yes (Other)
  Sender: FDA-Public Use
  Company Number: US-PFIZER INC-2009295706

PATIENT
  Age: 24 Year
  Sex: Male

DRUGS (7)
  1. VORICONAZOLE [Suspect]
     Dosage: 200 MG (3.5 MG/KG), 2X/DAY
     Route: 042
  2. VORICONAZOLE [Suspect]
     Dosage: 400 MG (7 MG/ KG), 2X/DAY
     Route: 042
  3. VORICONAZOLE [Suspect]
     Dosage: 400 MG, 2X/DAY
     Route: 048
  4. VORICONAZOLE [Suspect]
     Dosage: 300 MG, 2X/DAY
  5. INTERFERON GAMMA [Suspect]
     Dosage: 100 UG, 3 TIMES WEEKLY
     Route: 058
  6. FLUCONAZOLE [Concomitant]
     Indication: INFECTION
     Dosage: 800 MG, 1X/DAY
     Route: 048
  7. FLUCONAZOLE [Concomitant]
     Dosage: 400 MG, 1X/DAY
     Route: 048

REACTIONS (1)
  - DRUG INTERACTION [None]
